FAERS Safety Report 6993863-7 (Version None)
Quarter: 2010Q3

REPORT INFORMATION
  Report Type: 
  Country: None (occurrence: None)
  Receive Date: 20100917
  Receipt Date: 20091030
  Transmission Date: 20110219
  Serious: Yes (Other)
  Sender: FDA-Public Use
  Company Number: US-ASTRAZENECA-2006UW24009

PATIENT
  Sex: Female

DRUGS (15)
  1. SEROQUEL [Suspect]
     Dosage: 25 MG - 150 MG DAILY
     Route: 048
     Dates: start: 20040827
  2. ABILIFY [Concomitant]
  3. ZYPREXA [Concomitant]
  4. TRAZODONE HCL [Concomitant]
  5. ROZEREM [Concomitant]
  6. HYDROXYZINE [Concomitant]
  7. TESSALON [Concomitant]
     Indication: COUGH
     Dosage: STRENGTH: 100 MG, EVERY EIGHT HOURS AS NEEDED
     Dates: start: 20040603
  8. LOMOTIL [Concomitant]
     Indication: DIARRHOEA
     Dosage: 2.5 MG/0.025 MG EVERY FOUR HOURS PRN
     Dates: start: 20040819
  9. LORTAB [Concomitant]
     Indication: PAIN
     Dosage: STRENGTH: 7.5 MG/500 MG, EVERY SIX HOURS
     Route: 048
  10. TENORMIN [Concomitant]
     Dosage: 50 MG - 100 MG DAILY
     Route: 048
     Dates: start: 20040827
  11. LISINOPRIL [Concomitant]
     Route: 048
     Dates: start: 20060908
  12. ENABLEX [Concomitant]
     Dates: start: 20060405
  13. GABAPENTIN [Concomitant]
     Dates: start: 20060717
  14. LEVOTHYROX TB [Concomitant]
     Route: 048
     Dates: start: 20060824
  15. ARICEPT [Concomitant]
     Route: 048
     Dates: start: 20060928

REACTIONS (2)
  - DIABETES MELLITUS [None]
  - PANCREATITIS [None]
